FAERS Safety Report 8890694 (Version 1)
Quarter: 2012Q4

REPORT INFORMATION
  Report Type: 
  Country: GB (occurrence: GB)
  Receive Date: 20121106
  Receipt Date: 20121106
  Transmission Date: 20130627
  Serious: Yes (Other)
  Sender: FDA-Public Use
  Company Number: GB-ALLERGAN-1208292US

PATIENT
  Sex: Female

DRUGS (1)
  1. OZURDEX [Suspect]
     Indication: DRUG USE FOR UNKNOWN INDICATION
     Dosage: 0.7 mg, single
     Route: 031
     Dates: start: 201205, end: 201205

REACTIONS (2)
  - Blindness unilateral [Not Recovered/Not Resolved]
  - Intraocular pressure increased [Unknown]
